FAERS Safety Report 8886069 (Version 8)
Quarter: 2015Q1

REPORT INFORMATION
  Report Type: Spontaneous
  Country: US (occurrence: US)
  Receive Date: 20121105
  Receipt Date: 20150212
  Transmission Date: 20150721
  Serious: Yes (Hospitalization, Disabling, Other)
  Sender: FDA-Public Use
  Company Number: US-MERCK-1210USA012392

PATIENT
  Sex: Female
  Weight: 74.83 kg

DRUGS (3)
  1. FOSAMAX [Suspect]
     Active Substance: ALENDRONATE SODIUM
     Indication: OSTEOPENIA
     Dosage: 70 MG, QW
     Route: 048
     Dates: start: 20110825
  2. BONIVA [Suspect]
     Active Substance: IBANDRONATE SODIUM
     Indication: OSTEOPOROSIS
     Dosage: 150 MG, QM
     Route: 048
     Dates: start: 200803, end: 201108
  3. FOSAMAX [Suspect]
     Active Substance: ALENDRONATE SODIUM
     Indication: OSTEOPOROSIS
     Dosage: 70 MG, QW
     Route: 048
     Dates: start: 200203, end: 200803

REACTIONS (20)
  - Paraesthesia [Unknown]
  - Arthralgia [Unknown]
  - Procedural hypotension [Unknown]
  - Osteopenia [Unknown]
  - Intramedullary rod insertion [Unknown]
  - Blood potassium decreased [Unknown]
  - Adverse event [Unknown]
  - Hypertension [Unknown]
  - Hiatus hernia [Unknown]
  - Biopsy lung [Unknown]
  - Appendicectomy [Unknown]
  - Femur fracture [Not Recovered/Not Resolved]
  - Arthroscopy [Unknown]
  - Depression [Unknown]
  - Blood cholesterol increased [Unknown]
  - Biopsy breast [Unknown]
  - Gastrooesophageal reflux disease [Unknown]
  - Haemoglobin decreased [Unknown]
  - Arthroscopy [Unknown]
  - Sarcoidosis [Unknown]

NARRATIVE: CASE EVENT DATE: 2002
